FAERS Safety Report 5607896-6 (Version None)
Quarter: 2008Q1

REPORT INFORMATION
  Report Type: 
  Country: None (occurrence: None)
  Receive Date: 20080130
  Receipt Date: 20070629
  Transmission Date: 20080703
  Serious: No
  Sender: FDA-Public Use
  Company Number: US-ASTRAZENECA-2007UW15332

PATIENT
  Age: 79 Year
  Sex: Female
  Weight: 50.8 kg

DRUGS (8)
  1. ACCOLATE [Suspect]
     Indication: DYSPNOEA
     Route: 048
     Dates: start: 20070601, end: 20070601
  2. ACCOLATE [Suspect]
     Route: 048
     Dates: start: 20070601, end: 20070601
  3. ACCOLATE [Suspect]
     Route: 048
     Dates: start: 20070601
  4. ADVAIR DISKUS 100/50 [Concomitant]
  5. SPIRIVA [Concomitant]
  6. ALBUTEROL [Concomitant]
  7. PEPCID [Concomitant]
  8. BREATHING MEDICATIONS [Concomitant]

REACTIONS (3)
  - ARTHRALGIA [None]
  - PAIN [None]
  - POLLAKIURIA [None]
